FAERS Safety Report 21118558 (Version 1)
Quarter: 2022Q3

REPORT INFORMATION
  Report Type: Spontaneous
  Country: US (occurrence: None)
  Receive Date: 20220721
  Receipt Date: 20220721
  Transmission Date: 20221026
  Serious: Yes (Life-Threatening, Hospitalization)
  Sender: FDA-Public Use
  Company Number: None

PATIENT
  Age: 77 Year
  Sex: Male
  Weight: 99 kg

DRUGS (1)
  1. CASIRIVIMAB\IMDEVIMAB [Suspect]
     Active Substance: CASIRIVIMAB\IMDEVIMAB
     Indication: Myocardial infarction
     Dates: start: 20211119, end: 20211119

REACTIONS (5)
  - Blood pressure increased [None]
  - Brain natriuretic peptide increased [None]
  - Platelet count decreased [None]
  - Sinus tachycardia [None]
  - Myocardial infarction [None]

NARRATIVE: CASE EVENT DATE: 20211119
